FAERS Safety Report 18575096 (Version 2)
Quarter: 2021Q4

REPORT INFORMATION
  Report Type: Spontaneous
  Country: JP (occurrence: JP)
  Receive Date: 20201203
  Receipt Date: 20211022
  Transmission Date: 20220304
  Serious: Yes (Other)
  Sender: FDA-Public Use
  Company Number: 2020SF57807

PATIENT

DRUGS (1)
  1. LYNPARZA [Suspect]
     Active Substance: OLAPARIB
     Dosage: DOSE UNKNOWN
     Route: 048

REACTIONS (22)
  - Extradural haematoma [Unknown]
  - White blood cell count decreased [Unknown]
  - Neutrophil count decreased [Unknown]
  - Malaise [Unknown]
  - Insomnia [Unknown]
  - Aspartate aminotransferase increased [Unknown]
  - Ear congestion [Unknown]
  - Alanine aminotransferase increased [Unknown]
  - Chest discomfort [Unknown]
  - Chest pain [Unknown]
  - Fatigue [Unknown]
  - Stomatitis [Unknown]
  - Decreased appetite [Unknown]
  - Haemoglobin decreased [Unknown]
  - Haematocrit decreased [Unknown]
  - Platelet count decreased [Unknown]
  - Somnolence [Unknown]
  - Epigastric discomfort [Unknown]
  - Polyp [Unknown]
  - Haemorrhoids [Unknown]
  - Visual acuity reduced [Unknown]
  - Photophobia [Unknown]
